FAERS Safety Report 24589056 (Version 2)
Quarter: 2024Q4

REPORT INFORMATION
  Report Type: Spontaneous
  Country: IR (occurrence: IR)
  Receive Date: 20241107
  Receipt Date: 20241121
  Transmission Date: 20250115
  Serious: No
  Sender: ASTELLAS
  Company Number: IR-ASTELLAS-2024-AER-016670

PATIENT
  Age: 53 Year
  Sex: Female

DRUGS (1)
  1. VESICARE [Suspect]
     Active Substance: SOLIFENACIN SUCCINATE
     Indication: Hypertonic bladder
     Route: 048
     Dates: start: 20241015

REACTIONS (2)
  - Off label use [Unknown]
  - Contraindicated product administered [Unknown]

NARRATIVE: CASE EVENT DATE: 20241015
